FAERS Safety Report 25578771 (Version 1)
Quarter: 2025Q3

REPORT INFORMATION
  Report Type: Spontaneous
  Country: US (occurrence: US)
  Receive Date: 20250718
  Receipt Date: 20250718
  Transmission Date: 20251020
  Serious: Yes (Life-Threatening)
  Sender: ELI LILLY AND COMPANY
  Company Number: US-MLMSERVICE-20250710-PI572890-00153-1

PATIENT
  Age: 76 Year
  Sex: Female

DRUGS (1)
  1. FLUOXETINE HYDROCHLORIDE [Suspect]
     Active Substance: FLUOXETINE HYDROCHLORIDE
     Indication: Antidepressant therapy
     Route: 065

REACTIONS (3)
  - Eosinophilic pneumonia chronic [Unknown]
  - Interstitial lung disease [Unknown]
  - Interstitial lung disease [Unknown]
